FAERS Safety Report 11513943 (Version 4)
Quarter: 2015Q4

REPORT INFORMATION
  Report Type: Spontaneous
  Country: US (occurrence: US)
  Receive Date: 20150916
  Receipt Date: 20151203
  Transmission Date: 20160304
  Serious: Yes (Other)
  Sender: FDA-Public Use
  Company Number: US-PFIZER INC-2015307484

PATIENT
  Age: 59 Year
  Sex: Female

DRUGS (1)
  1. ALPRAZOLAM. [Suspect]
     Active Substance: ALPRAZOLAM
     Indication: ANXIETY
     Dosage: 0.5 MG, UNK
     Dates: start: 2005

REACTIONS (18)
  - Pharyngeal oedema [Unknown]
  - Headache [Unknown]
  - Withdrawal syndrome [Unknown]
  - Urticaria [Unknown]
  - Agitation [Unknown]
  - Hyperhidrosis [Unknown]
  - Swelling face [Unknown]
  - Panic reaction [Unknown]
  - Tremor [Unknown]
  - Hypertension [Unknown]
  - Chest pain [Unknown]
  - Speech disorder [Unknown]
  - Feeling hot [Unknown]
  - Emotional disorder [Unknown]
  - Palpitations [Unknown]
  - Psychomotor hyperactivity [Unknown]
  - Dizziness [Unknown]
  - Malaise [Unknown]

NARRATIVE: CASE EVENT DATE: 20150914
